FAERS Safety Report 10258170 (Version 1)
Quarter: 2014Q2

REPORT INFORMATION
  Report Type: Spontaneous
  Country: US (occurrence: US)
  Receive Date: 20140625
  Receipt Date: 20140625
  Transmission Date: 20141212
  Serious: No
  Sender: FDA-Public Use
  Company Number: US-BAYER-2014-095295

PATIENT
  Age: 82 Year
  Sex: Female
  Weight: 61.22 kg

DRUGS (4)
  1. DIOVAN [Concomitant]
     Dosage: UNK
  2. CALCIUM [Concomitant]
     Dosage: UNK
  3. VITAMIN C [Concomitant]
     Dosage: UNK
  4. ALEVE GELCAPS [Suspect]
     Indication: PAIN
     Dosage: 2 DF, BID
     Route: 048
     Dates: start: 201406, end: 20140624

REACTIONS (2)
  - Extra dose administered [None]
  - Peripheral swelling [Not Recovered/Not Resolved]
